FAERS Safety Report 11038524 (Version 2)
Quarter: 2015Q2

REPORT INFORMATION
  Report Type: Spontaneous
  Country: US (occurrence: US)
  Receive Date: 20150416
  Receipt Date: 20150605
  Transmission Date: 20150821
  Serious: No
  Sender: FDA-Public Use
  Company Number: US-TEVA-552725USA

PATIENT
  Age: 70 Year
  Sex: Male
  Weight: 205 kg

DRUGS (21)
  1. CRESTOR [Concomitant]
     Active Substance: ROSUVASTATIN CALCIUM
     Indication: HYPERCHOLESTEROLAEMIA
     Dosage: 5.7143 MILLIGRAM DAILY;
  2. GLUCOSAMINE SULFATE W/CHONDROITIN [Concomitant]
     Indication: ARTHRALGIA
  3. VITAMIN C [Concomitant]
     Active Substance: ASCORBIC ACID
     Indication: CONTUSION
     Dosage: 1000 MILLIGRAM DAILY;
  4. PREVACID [Concomitant]
     Active Substance: LANSOPRAZOLE
     Indication: HIATUS HERNIA
     Dosage: 30 MILLIGRAM DAILY;
  5. BACLOFEN. [Concomitant]
     Active Substance: BACLOFEN
     Indication: MUSCLE SPASMS
     Dosage: 30 MILLIGRAM DAILY; AS REQUIRED
  6. CARBIDOPA AND LEVODOPA [Suspect]
     Active Substance: CARBIDOPA\LEVODOPA
     Indication: PARKINSON^S DISEASE
     Route: 065
     Dates: start: 201502
  7. ASPIRIN. [Concomitant]
     Active Substance: ASPIRIN
     Indication: CORONARY ARTERIAL STENT INSERTION
     Dosage: 81 MILLIGRAM DAILY;
  8. NORVASC [Concomitant]
     Active Substance: AMLODIPINE BESYLATE
     Indication: HYPERTENSION
     Dosage: 10 MILLIGRAM DAILY;
  9. VITAMIN D3 [Concomitant]
     Active Substance: CHOLECALCIFEROL
     Indication: VITAMIN D DECREASED
     Dosage: 3200 IU (INTERNATIONAL UNIT) DAILY;
  10. SINGULAIR [Concomitant]
     Active Substance: MONTELUKAST SODIUM
     Indication: HYPERSENSITIVITY
  11. VITAMIN B12 [Concomitant]
     Active Substance: CYANOCOBALAMIN
     Indication: SUPPLEMENTATION THERAPY
     Dosage: 500 MICROGRAM DAILY;
  12. AZILECT [Suspect]
     Active Substance: RASAGILINE MESYLATE
     Indication: PARKINSON^S DISEASE
     Route: 065
     Dates: start: 20141023
  13. PREVACID [Concomitant]
     Active Substance: LANSOPRAZOLE
     Indication: GASTROOESOPHAGEAL REFLUX DISEASE
  14. MOBIC [Concomitant]
     Active Substance: MELOXICAM
     Indication: ARTHRALGIA
     Dosage: 3 MILLIGRAM DAILY; AS REQUIRED
  15. FIBER CAPSULE [Concomitant]
     Indication: FUNCTIONAL GASTROINTESTINAL DISORDER
  16. FLECTOR [Concomitant]
     Active Substance: DICLOFENAC EPOLAMINE
     Indication: BACK PAIN
     Dosage: AS REQUIRED
  17. STOOL SOFTENER [Concomitant]
     Active Substance: DOCUSATE CALCIUM
     Indication: CONSTIPATION
     Dosage: AS NEEDED
  18. PROBIOTICS [Concomitant]
     Active Substance: PROBIOTICS NOS
     Indication: DYSBACTERIOSIS
     Dosage: 10 MILLIGRAM DAILY;
  19. COREG [Concomitant]
     Active Substance: CARVEDILOL
     Indication: CARDIAC DISORDER
     Dosage: 50 MILLIGRAM DAILY;
  20. ZETIA [Concomitant]
     Active Substance: EZETIMIBE
     Indication: HYPERCHOLESTEROLAEMIA
     Dosage: 10 MILLIGRAM DAILY;
  21. CALCIUM CITRATE [Concomitant]
     Active Substance: CALCIUM CITRATE
     Indication: OSTEOPOROSIS

REACTIONS (3)
  - Nausea [Not Recovered/Not Resolved]
  - Peripheral swelling [Recovered/Resolved]
  - Arthralgia [Recovered/Resolved]

NARRATIVE: CASE EVENT DATE: 20150204
